FAERS Safety Report 15979986 (Version 3)
Quarter: 2020Q2

REPORT INFORMATION
  Report Type: Report from Study
  Country: DE (occurrence: DE)
  Receive Date: 20190219
  Receipt Date: 20200608
  Transmission Date: 20200713
  Serious: Yes (Hospitalization)
  Sender: FDA-Public Use
  Company Number: DE-ACCORD-107676

PATIENT
  Age: 46 Year
  Sex: Female
  Weight: 60 kg

DRUGS (6)
  1. DOCETAXEL. [Suspect]
     Active Substance: DOCETAXEL
     Indication: BREAST CANCER
     Dosage: DAILY DOSE: 130 MG MILLGRAM(S) EVERY 3 WEEKS
     Route: 042
     Dates: start: 20160908
  2. ZOMETA [Suspect]
     Active Substance: ZOLEDRONIC ACID
     Indication: PRODUCT USED FOR UNKNOWN INDICATION
     Dosage: DAILY DOSE: 4 MG MILLGRAM(S) EVERY 3 WEEKS
     Route: 042
     Dates: start: 20160908
  3. HERCEPTIN [Suspect]
     Active Substance: TRASTUZUMAB
     Indication: BREAST CANCER
     Dosage: DAILY DOSE: 600 MG MILLGRAM(S) EVERY 3 WEEKS
     Route: 042
     Dates: start: 20160908
  4. DEXAMETHASONE. [Concomitant]
     Active Substance: DEXAMETHASONE
     Indication: PROPHYLAXIS OF NAUSEA AND VOMITING
     Dosage: DAILY DOSE: 28 MG MILLGRAM(S) EVERY 3 WEEKS
     Route: 048
     Dates: start: 20160908, end: 20160908
  5. HERCEPTIN [Suspect]
     Active Substance: TRASTUZUMAB
     Indication: BREAST CANCER
     Dosage: DAILY DOSE: 600 MG MILLGRAM(S) EVERY 3 WEEKS
     Route: 058
     Dates: start: 20160908
  6. PERTUZUMAB. [Suspect]
     Active Substance: PERTUZUMAB
     Indication: BREAST CANCER
     Dosage: ALSO RECEIVED 420 MG 3 WEEKS FROM UNKNOWN DATE
     Route: 042
     Dates: start: 20160908

REACTIONS (8)
  - Leukopenia [Recovered/Resolved]
  - Fatigue [Recovered/Resolved]
  - Diarrhoea [Recovered/Resolved]
  - Bone pain [Not Recovered/Not Resolved]
  - Neutropenia [Recovered/Resolved]
  - Alopecia [Recovered/Resolved]
  - Palmar-plantar erythrodysaesthesia syndrome [Not Recovered/Not Resolved]
  - Peripheral sensory neuropathy [Recovered/Resolved with Sequelae]

NARRATIVE: CASE EVENT DATE: 20160910
